FAERS Safety Report 15055269 (Version 9)
Quarter: 2019Q1

REPORT INFORMATION
  Report Type: Spontaneous
  Country: US (occurrence: US)
  Receive Date: 20180622
  Receipt Date: 20190107
  Transmission Date: 20190417
  Serious: Yes (Hospitalization, Disabling)
  Sender: FDA-Public Use
  Company Number: US-OTSUKA-2018_015764

PATIENT
  Age: 51 Year
  Sex: Female
  Weight: 97.05 kg

DRUGS (13)
  1. ABILIFY [Suspect]
     Active Substance: ARIPIPRAZOLE
     Indication: ADJUVANT THERAPY
     Dosage: 5 MG, QD
     Route: 065
     Dates: end: 201505
  2. AMBIEN [Concomitant]
     Active Substance: ZOLPIDEM TARTRATE
     Indication: PRODUCT USED FOR UNKNOWN INDICATION
     Dosage: 10 MG, QD (AT BEDTIME)
     Route: 048
  3. KLONOPIN [Concomitant]
     Active Substance: CLONAZEPAM
     Indication: PRODUCT USED FOR UNKNOWN INDICATION
     Dosage: 1 DF, TID
     Route: 048
  4. VENLAFAXINE [Concomitant]
     Active Substance: VENLAFAXINE HYDROCHLORIDE
     Indication: PRODUCT USED FOR UNKNOWN INDICATION
     Dosage: 1 DF, QD
     Route: 048
     Dates: end: 20141222
  5. OXYCONTIN [Concomitant]
     Active Substance: OXYCODONE HYDROCHLORIDE
     Dosage: 20 MG, QD
     Route: 048
     Dates: end: 20141222
  6. PERCOCET [Concomitant]
     Active Substance: ACETAMINOPHEN\OXYCODONE HYDROCHLORIDE
     Indication: PRODUCT USED FOR UNKNOWN INDICATION
     Dosage: 1-2 DF, EVERY 4-6 HOURS AS NEEDED
     Route: 048
     Dates: end: 20141222
  7. CYMBALTA [Concomitant]
     Active Substance: DULOXETINE HYDROCHLORIDE
     Indication: PRODUCT USED FOR UNKNOWN INDICATION
     Dosage: 60 MG, QD
     Route: 048
     Dates: end: 20141222
  8. AMBIEN [Concomitant]
     Active Substance: ZOLPIDEM TARTRATE
     Dosage: 2 DF, QD (AT BEDTIME)
     Route: 048
  9. WELLBUTRIN [Concomitant]
     Active Substance: BUPROPION HYDROCHLORIDE
     Indication: PRODUCT USED FOR UNKNOWN INDICATION
     Dosage: 1 DF, BID
     Route: 048
  10. OXYCONTIN [Concomitant]
     Active Substance: OXYCODONE HYDROCHLORIDE
     Indication: PRODUCT USED FOR UNKNOWN INDICATION
     Dosage: 40 MG, BID
     Route: 048
  11. NEURONTIN [Concomitant]
     Active Substance: GABAPENTIN
     Indication: PRODUCT USED FOR UNKNOWN INDICATION
     Dosage: 300 MG, QD
     Route: 048
     Dates: end: 20141222
  12. ABILIFY [Suspect]
     Active Substance: ARIPIPRAZOLE
     Indication: MAJOR DEPRESSION
     Dosage: 2 MG, QD
     Route: 048
     Dates: end: 20141222
  13. KEPPRA [Concomitant]
     Active Substance: LEVETIRACETAM
     Indication: PRODUCT USED FOR UNKNOWN INDICATION
     Dosage: 1 DF, QD
     Route: 048

REACTIONS (59)
  - Spinal osteoarthritis [Unknown]
  - Vitamin D deficiency [Unknown]
  - Decreased interest [Unknown]
  - Stress [Unknown]
  - Compulsive sexual behaviour [Recovered/Resolved]
  - Bipolar disorder [Unknown]
  - Platelet count increased [Unknown]
  - Blood cholesterol increased [Unknown]
  - Irritability [Unknown]
  - Pain [Unknown]
  - Myalgia [Unknown]
  - Disturbance in attention [Unknown]
  - Compulsive shopping [Recovered/Resolved]
  - Sinus pain [Unknown]
  - Sluggishness [Unknown]
  - Psychiatric symptom [Unknown]
  - Low density lipoprotein increased [Unknown]
  - Sleep disorder [Unknown]
  - Back pain [Unknown]
  - Cough [Unknown]
  - Headache [Unknown]
  - Disability [Unknown]
  - Hospitalisation [Recovered/Resolved]
  - Condition aggravated [Unknown]
  - Intervertebral disc degeneration [Unknown]
  - Menopausal symptoms [Unknown]
  - Acute sinusitis [Unknown]
  - Drug screen positive [Unknown]
  - Weight fluctuation [Unknown]
  - Condition aggravated [Recovered/Resolved]
  - Decreased appetite [Unknown]
  - Economic problem [Unknown]
  - Mean cell haemoglobin increased [Unknown]
  - Chronic sinusitis [Unknown]
  - Bursitis [Unknown]
  - Emotional distress [Unknown]
  - Panic attack [Unknown]
  - Malaise [Unknown]
  - Blood creatinine increased [Unknown]
  - Asthenia [Unknown]
  - Nasal congestion [Unknown]
  - Gambling disorder [Recovered/Resolved]
  - Restlessness [Unknown]
  - Insomnia [Unknown]
  - Depression [Unknown]
  - Glycosylated haemoglobin increased [Unknown]
  - Injury [Unknown]
  - Red cell distribution width increased [Unknown]
  - Tachyphrenia [Unknown]
  - Sneezing [Unknown]
  - Oedema [Unknown]
  - Rhinorrhoea [Unknown]
  - Glomerular filtration rate decreased [Unknown]
  - Abdominal pain [Unknown]
  - Anhedonia [Unknown]
  - Arthralgia [Unknown]
  - Weight increased [Unknown]
  - Anxiety [Unknown]
  - Bankruptcy [Unknown]

NARRATIVE: CASE EVENT DATE: 2001
